FAERS Safety Report 19944553 (Version 1)
Quarter: 2021Q4

REPORT INFORMATION
  Report Type: 
  Country: US (occurrence: US)
  Receive Date: 20211011
  Receipt Date: 20211011
  Transmission Date: 20220304
  Serious: No
  Sender: FDA-Public Use
  Company Number: US-C B FLEET CO INC-202012-US-004397

PATIENT
  Sex: Female

DRUGS (2)
  1. MONISTAT 1 COMBINATION PACK [Suspect]
     Active Substance: MICONAZOLE NITRATE
     Indication: Fungal infection
     Dosage: DOSAGE UNKNOWN
     Route: 067
     Dates: start: 20201201
  2. FLUCONAZOLE [Concomitant]
     Active Substance: FLUCONAZOLE
     Route: 067

REACTIONS (2)
  - Vulvovaginal burning sensation [Recovered/Resolved]
  - Vulvovaginal pain [Recovered/Resolved]
